FAERS Safety Report 6414291-9 (Version None)
Quarter: 2009Q4

REPORT INFORMATION
  Report Type: 
  Country: None (occurrence: None)
  Receive Date: 20091026
  Receipt Date: 20091019
  Transmission Date: 20100525
  Serious: Yes (Death)
  Sender: FDA-Public Use
  Company Number: JP-ELI_LILLY_AND_COMPANY-JP200910004933

PATIENT
  Age: 75 Year
  Sex: Male

DRUGS (1)
  1. ALIMTA [Suspect]
     Indication: LUNG ADENOCARCINOMA STAGE I
     Dosage: 800 MG, OTHER
     Route: 042
     Dates: start: 20090831, end: 20090925

REACTIONS (1)
  - PNEUMONIA [None]
